FAERS Safety Report 18524453 (Version 2)
Quarter: 2020Q4

REPORT INFORMATION
  Report Type: Spontaneous
  Country: JP (occurrence: JP)
  Receive Date: 20201119
  Receipt Date: 20201217
  Transmission Date: 20210114
  Serious: Yes (Hospitalization)
  Sender: FDA-Public Use
  Company Number: JP-ELI_LILLY_AND_COMPANY-JP202011005299

PATIENT
  Age: 74 Year
  Sex: Female
  Weight: 43 kg

DRUGS (3)
  1. FASLODEX [Concomitant]
     Active Substance: FULVESTRANT
     Indication: INVASIVE DUCTAL BREAST CARCINOMA
     Dosage: 500 MG
     Route: 030
     Dates: start: 20200812, end: 202010
  2. VERZENIO [Suspect]
     Active Substance: ABEMACICLIB
     Indication: INVASIVE DUCTAL BREAST CARCINOMA
     Dosage: 150 MG, UNKNOWN
     Route: 048
     Dates: start: 20200812, end: 202010
  3. LOPEMIN [LOPERAMIDE HYDROCHLORIDE] [Concomitant]
     Active Substance: LOPERAMIDE HYDROCHLORIDE

REACTIONS (4)
  - Oedema peripheral [Recovering/Resolving]
  - Erythema [Unknown]
  - Pleural effusion [Recovering/Resolving]
  - Scleroderma [Unknown]

NARRATIVE: CASE EVENT DATE: 20200909
